FAERS Safety Report 19784642 (Version 1)
Quarter: 2021Q3

REPORT INFORMATION
  Report Type: Spontaneous
  Country: US (occurrence: US)
  Receive Date: 20210903
  Receipt Date: 20210903
  Transmission Date: 20211014
  Serious: Yes (Hospitalization)
  Sender: FDA-Public Use
  Company Number: US-VELOXIS PHARMACEUTICALS-2020VELUS-000728

PATIENT
  Age: 63 Year
  Sex: Male

DRUGS (1)
  1. ENVARSUS XR [Suspect]
     Active Substance: TACROLIMUS
     Indication: PRODUCT USED FOR UNKNOWN INDICATION
     Dosage: 5 MG, QD
     Dates: start: 201909

REACTIONS (4)
  - Tremor [Unknown]
  - White blood cell count decreased [Unknown]
  - Perirectal abscess [Unknown]
  - Proctalgia [Unknown]

NARRATIVE: CASE EVENT DATE: 202007
